FAERS Safety Report 4967150-2 (Version None)
Quarter: 2006Q2

REPORT INFORMATION
  Report Type: 
  Country: None (occurrence: None)
  Receive Date: 20060404
  Receipt Date: 20060320
  Transmission Date: 20061013
  Serious: Yes (Other)
  Sender: FDA-Public Use
  Company Number: 2006S1002135

PATIENT
  Age: 38 Year
  Sex: Female

DRUGS (3)
  1. LEVOTHYROXINE SODIUM [Suspect]
     Indication: AUTOIMMUNE THYROIDITIS
     Dosage: 125 UG;QD;ORAL
     Route: 048
     Dates: start: 20040101
  2. LEVOTHYROXINE SODIUM [Suspect]
     Indication: HYPOTHYROIDISM
     Dosage: 125 UG;QD;ORAL
     Route: 048
     Dates: start: 20040101
  3. FLUOXETINE HYDROCHLORIDE [Concomitant]

REACTIONS (16)
  - BACK PAIN [None]
  - BLOOD THYROID STIMULATING HORMONE INCREASED [None]
  - DEPRESSION [None]
  - DIFFICULTY IN WALKING [None]
  - DIZZINESS [None]
  - HYPOKINESIA [None]
  - JOINT STIFFNESS [None]
  - MUSCLE SPASMS [None]
  - MUSCULOSKELETAL STIFFNESS [None]
  - OEDEMA PERIPHERAL [None]
  - PAIN IN EXTREMITY [None]
  - PALPITATIONS [None]
  - PHARMACEUTICAL PRODUCT COMPLAINT [None]
  - SENSATION OF HEAVINESS [None]
  - TRICHORRHEXIS [None]
  - WEIGHT INCREASED [None]
